FAERS Safety Report 5177391-X (Version None)
Quarter: 2006Q4

REPORT INFORMATION
  Report Type: 
  Country: None (occurrence: None)
  Receive Date: 20061207
  Receipt Date: 20061129
  Transmission Date: 20070319
  Serious: Yes (Hospitalization)
  Sender: FDA-Public Use
  Company Number: 2006148331

PATIENT
  Age: 65 Year
  Sex: Male
  Weight: 70 kg

DRUGS (5)
  1. ACUITEL (QUINAPRIL HYDROCHLORIDE) [Suspect]
     Dosage: ORAL
     Route: 048
     Dates: end: 20060802
  2. GLICLAZIDE (GLICLAZIDE) [Suspect]
     Dosage: ORAL
     Route: 048
     Dates: end: 20060822
  3. LASIX [Suspect]
     Dosage: ORAL
     Route: 048
  4. PREVISCAN (FLUINDIONE) [Suspect]
     Dosage: 15 MG (15 MG,1 IN 1 D), ORAL
     Route: 048
     Dates: end: 20060801
  5. ALLOPURINOL [Suspect]
     Dosage: ORAL
     Route: 048

REACTIONS (15)
  - ANAEMIA [None]
  - ANTI FACTOR VIII ANTIBODY POSITIVE [None]
  - ASTHENIA [None]
  - ATRIAL THROMBOSIS [None]
  - BACK PAIN [None]
  - CHOLESTASIS [None]
  - COMPUTERISED TOMOGRAM ABNORMAL [None]
  - ESCHAR [None]
  - FACTOR VIII DEFICIENCY [None]
  - HAEMATOMA [None]
  - HEPATIC CIRRHOSIS [None]
  - NORMOCHROMIC NORMOCYTIC ANAEMIA [None]
  - PALLOR [None]
  - PLEURAL EFFUSION [None]
  - SPLENOMEGALY [None]
